FAERS Safety Report 25109326 (Version 1)
Quarter: 2025Q1

REPORT INFORMATION
  Report Type: Spontaneous
  Country: US (occurrence: US)
  Receive Date: 20250323
  Receipt Date: 20250323
  Transmission Date: 20250409
  Serious: No
  Sender: SANOFI AVENTIS
  Company Number: US-SA-2025SA083583

PATIENT
  Age: 55 Year
  Sex: Female
  Weight: 105 kg

DRUGS (15)
  1. DUPIXENT [Suspect]
     Active Substance: DUPILUMAB
     Indication: Asthma
     Dosage: 200 MG, QOW
     Route: 058
     Dates: start: 202403
  2. ALBUTEROL SULFATE [Concomitant]
     Active Substance: ALBUTEROL SULFATE
  3. ALBUTEROL SULFATE [Concomitant]
     Active Substance: ALBUTEROL SULFATE
  4. ATORVASTATIN CALCIUM [Concomitant]
     Active Substance: ATORVASTATIN CALCIUM
  5. BREZTRI [Concomitant]
     Active Substance: BUDESONIDE\FORMOTEROL\GLYCOPYRROLATE
  6. CLARITIN [Concomitant]
     Active Substance: LORATADINE
  7. JARDIANCE [Concomitant]
     Active Substance: EMPAGLIFLOZIN
  8. MOTRIN IB [Concomitant]
     Active Substance: IBUPROFEN
  9. PEPCID [Concomitant]
     Active Substance: FAMOTIDINE
  10. POTASSIUM GLUCONATE [Concomitant]
     Active Substance: POTASSIUM GLUCONATE
  11. SINGULAIR [Concomitant]
     Active Substance: MONTELUKAST SODIUM
  12. VITAMIN D3 [Concomitant]
     Active Substance: CHOLECALCIFEROL
  13. POTASSIUM CHLORIDE [Concomitant]
     Active Substance: POTASSIUM CHLORIDE
  14. PRAVASTATIN SODIUM [Concomitant]
     Active Substance: PRAVASTATIN SODIUM
  15. MONTELUKAST SODIUM [Concomitant]
     Active Substance: MONTELUKAST SODIUM

REACTIONS (1)
  - Myalgia [Not Recovered/Not Resolved]
